FAERS Safety Report 7942532-5 (Version None)
Quarter: 2011Q4

REPORT INFORMATION
  Report Type: 
  Country: None (occurrence: None)
  Receive Date: 20111128
  Receipt Date: 20111116
  Transmission Date: 20120403
  Serious: Yes (Hospitalization, Other)
  Sender: FDA-Public Use
  Company Number: FR-GLAXOSMITHKLINE-B0763004A

PATIENT
  Sex: Female

DRUGS (9)
  1. LASIX [Concomitant]
     Dosage: .5UNIT PER DAY
  2. PREDNISOLONE [Concomitant]
     Dosage: 60MG PER DAY
  3. PLAVIX [Concomitant]
     Dosage: 75MG PER DAY
     Route: 048
  4. NITROGLYCERIN [Concomitant]
     Dosage: 10MG PER DAY
     Route: 062
  5. ARIXTRA [Suspect]
     Indication: THROMBOSIS PROPHYLAXIS
     Dosage: 2.5MG PER DAY
     Route: 058
     Dates: start: 20110803, end: 20110808
  6. LEVOTHYROXINE SODIUM [Concomitant]
     Dosage: 125MCG PER DAY
     Route: 048
  7. PERINDOPRIL ERBUMINE [Concomitant]
     Route: 048
  8. DIGOXIN [Concomitant]
  9. RABEPRAZOLE SODIUM [Concomitant]
     Dosage: 20MG PER DAY
     Route: 048

REACTIONS (2)
  - ECCHYMOSIS [None]
  - BREAST HAEMATOMA [None]
